FAERS Safety Report 8618827-9 (Version None)
Quarter: 2012Q3

REPORT INFORMATION
  Report Type: 
  Country: None (occurrence: None)
  Receive Date: 20120816
  Receipt Date: 20120816
  Transmission Date: 20120928
  Serious: No
  Sender: FDA-Public Use
  Company Number: None

PATIENT
  Sex: Female

DRUGS (4)
  1. PEGASYS [Suspect]
     Indication: HEPATITIS C
     Dosage: 180 MG WEEKLY SUBQ
     Route: 058
     Dates: start: 20120804
  2. LITHIUM CARBONATE [Concomitant]
  3. RIBAVIRIN [Suspect]
     Indication: HEPATITIS C
     Dosage: 800 MG DAILY 400 BID PO
     Route: 048
     Dates: start: 20120804
  4. INCIVEK [Suspect]
     Dosage: 750 MG BID

REACTIONS (3)
  - VOMITING [None]
  - NAUSEA [None]
  - HEADACHE [None]
